FAERS Safety Report 20924742 (Version 2)
Quarter: 2022Q3

REPORT INFORMATION
  Report Type: Report from Study
  Country: US (occurrence: US)
  Receive Date: 20220607
  Receipt Date: 20220907
  Transmission Date: 20221027
  Serious: Yes (Other)
  Sender: FDA-Public Use
  Company Number: US-CELGENE-USA-20220201777

PATIENT
  Age: 62 Year
  Sex: Female
  Weight: 68.03 kg

DRUGS (7)
  1. REVLIMID [Suspect]
     Active Substance: LENALIDOMIDE
     Indication: Plasma cell myeloma in remission
     Dosage: 21 OUT OF 28 DAYS
     Route: 048
     Dates: start: 2011
  2. REVLIMID [Suspect]
     Active Substance: LENALIDOMIDE
     Indication: Plasma cell myeloma
     Dosage: 25 MILLIGRAM
     Route: 048
     Dates: start: 201206
  3. REVLIMID [Suspect]
     Active Substance: LENALIDOMIDE
     Dosage: 15 MILLIGRAM
     Route: 048
     Dates: start: 201210
  4. REVLIMID [Suspect]
     Active Substance: LENALIDOMIDE
     Dosage: 10 MILLIGRAM, 21 OF 28 DAYS
     Route: 048
     Dates: start: 201308
  5. REVLIMID [Suspect]
     Active Substance: LENALIDOMIDE
     Dosage: FREQUENCY: 21 OUT OF 28 DAYS
     Route: 048
     Dates: start: 2011
  6. AMOXICILLIN [Concomitant]
     Active Substance: AMOXICILLIN
  7. DEXAMETHASONE [Concomitant]
     Active Substance: DEXAMETHASONE
     Indication: Product used for unknown indication

REACTIONS (4)
  - Ocular cyst [Unknown]
  - Staphylococcal infection [Unknown]
  - Hordeolum [Recovered/Resolved]
  - Visual impairment [Unknown]
